FAERS Safety Report 8620422-2 (Version None)
Quarter: 2012Q3

REPORT INFORMATION
  Report Type: 
  Country: None (occurrence: None)
  Receive Date: 20120824
  Receipt Date: 20120815
  Transmission Date: 20120928
  Serious: Yes (Hospitalization)
  Sender: FDA-Public Use
  Company Number: IE-GLAXOSMITHKLINE-B0824833A

PATIENT
  Sex: Female
  Weight: 75.5 kg

DRUGS (4)
  1. LAPATINIB [Suspect]
     Indication: BREAST CANCER
     Dosage: 1000MG PER DAY
     Route: 048
     Dates: start: 20120809
  2. DOCETAXEL [Suspect]
     Indication: BREAST CANCER
     Dosage: 75MGM2 CYCLIC
     Route: 042
     Dates: start: 20120809
  3. CARBOPLATIN [Suspect]
     Indication: BREAST CANCER
     Dosage: 790MG CYCLIC
     Route: 042
     Dates: start: 20120809
  4. TRASTUZUMAB [Suspect]
     Indication: BREAST CANCER
     Dosage: 8MGK CYCLIC
     Route: 042
     Dates: start: 20120809

REACTIONS (3)
  - VOMITING [None]
  - NEUTROPENIA [None]
  - DIARRHOEA [None]
